FAERS Safety Report 7549022-2 (Version None)
Quarter: 2011Q2

REPORT INFORMATION
  Report Type: 
  Country: None (occurrence: None)
  Receive Date: 20110615
  Receipt Date: 20110606
  Transmission Date: 20111010
  Serious: Yes (Other)
  Sender: FDA-Public Use
  Company Number: US-ROCHE-781203

PATIENT
  Age: 10 Year
  Sex: Male

DRUGS (7)
  1. ISOTRETINOIN [Suspect]
     Dosage: DOSAGE: 0.15 MG/KG
     Route: 065
  2. ISOTRETINOIN [Suspect]
     Route: 065
  3. ISOTRETINOIN [Suspect]
     Route: 065
  4. ISOTRETINOIN [Suspect]
     Route: 065
  5. ISOTRETINOIN [Suspect]
     Dosage: DOSAGE: 0.66 MG/KG
     Route: 065
  6. ISOTRETINOIN [Suspect]
     Dosage: DOSAGE: 0.37 MG/KG
     Route: 065
  7. ISOTRETINOIN [Suspect]
     Dosage: CUMULATIVE DOSE: 1500 MG/KG
     Route: 065

REACTIONS (2)
  - SINUSITIS [None]
  - ICHTHYOSIS [None]
